FAERS Safety Report 15888831 (Version 3)
Quarter: 2019Q1

REPORT INFORMATION
  Report Type: Spontaneous
  Country: NG (occurrence: NG)
  Receive Date: 20190130
  Receipt Date: 20190213
  Transmission Date: 20190417
  Serious: Yes (Hospitalization)
  Sender: FDA-Public Use
  Company Number: NG-ASTRAZENECA-2019SE15321

PATIENT
  Age: 20 Year
  Sex: Male

DRUGS (1)
  1. NEXIUM [Suspect]
     Active Substance: ESOMEPRAZOLE MAGNESIUM
     Route: 048

REACTIONS (3)
  - Vomiting [Recovered/Resolved]
  - Rash [Recovered/Resolved]
  - Counterfeit product administered [Recovered/Resolved]
